FAERS Safety Report 24882996 (Version 1)
Quarter: 2025Q1

REPORT INFORMATION
  Report Type: Spontaneous
  Country: ZA (occurrence: ZA)
  Receive Date: 20250124
  Receipt Date: 20250124
  Transmission Date: 20250409
  Serious: Yes (Hospitalization)
  Sender: AMGEN
  Company Number: ZA-SERVIER-S24018341

PATIENT
  Age: 57 Year
  Sex: Male

DRUGS (15)
  1. IVABRADINE HYDROCHLORIDE [Suspect]
     Active Substance: IVABRADINE HYDROCHLORIDE
     Indication: Angina pectoris
     Dosage: 10 MG, QD
     Route: 048
  2. BENYLIN FOUR FLU [Concomitant]
     Indication: Product used for unknown indication
     Route: 048
  3. FLUTEX COLD AND FLU WITH VITAMIN C [Concomitant]
     Indication: Product used for unknown indication
     Route: 048
  4. ACETYLCYSTEINE [Concomitant]
     Active Substance: ACETYLCYSTEINE
     Indication: Product used for unknown indication
     Route: 048
  5. SINUTAB SINUS ALLERGY CONGESTION AND PAIN [Concomitant]
     Indication: Product used for unknown indication
     Route: 048
  6. ETORICOXIB [Concomitant]
     Active Substance: ETORICOXIB
     Indication: Pain
     Dosage: 90 MG, QD
     Route: 048
  7. PREDNISONE [Concomitant]
     Active Substance: PREDNISONE
     Indication: Product used for unknown indication
     Dosage: 10 MG, QD
     Route: 048
  8. THEOPHYLLINE ANHYDROUS [Concomitant]
     Active Substance: THEOPHYLLINE ANHYDROUS
     Indication: Bronchospasm
     Dosage: 250 MG, BID
     Route: 048
  9. TRELEGY ELLIPTA [Concomitant]
     Active Substance: FLUTICASONE FUROATE\UMECLIDINIUM BROMIDE\VILANTEROL TRIFENATATE
     Indication: Asthma
     Dosage: 1 DF, QD
     Route: 055
  10. FUROSEMIDE [Concomitant]
     Active Substance: FUROSEMIDE
     Indication: Hypertension
     Dosage: 40 MG, QD
     Route: 048
  11. AMITRIPTYLINE HYDROCHLORIDE [Concomitant]
     Active Substance: AMITRIPTYLINE HYDROCHLORIDE
     Indication: Depression
     Dosage: 50 MG, QD
     Route: 048
  12. Sandoz co amoxyclav [Concomitant]
     Indication: Product used for unknown indication
     Dosage: 1000 MG, BID
     Route: 048
  13. ALLOPURINOL [Concomitant]
     Active Substance: ALLOPURINOL
     Indication: Gout
     Dosage: 300 MG, QD
     Route: 048
  14. ALLOPURINOL [Concomitant]
     Active Substance: ALLOPURINOL
     Indication: Prophylaxis
  15. IVABRADINE OXALATE [Concomitant]
     Active Substance: IVABRADINE OXALATE
     Indication: Angina pectoris
     Dosage: 5 MG, BID
     Route: 048

REACTIONS (2)
  - Illness [Unknown]
  - Product use issue [Recovered/Resolved]
